FAERS Safety Report 8949064 (Version 1)
Quarter: 2012Q4

REPORT INFORMATION
  Report Type: 
  Country: US (occurrence: US)
  Receive Date: 20121206
  Receipt Date: 20121206
  Transmission Date: 20130627
  Serious: Yes (Hospitalization)
  Sender: FDA-Public Use
  Company Number: US-AMGEN-USASP2012077482

PATIENT
  Age: 46 Year
  Sex: Female

DRUGS (1)
  1. ENBREL [Suspect]
     Indication: PSORIASIS
     Dosage: 50 mg, every seven or eight days
     Dates: start: 200712

REACTIONS (4)
  - Joint destruction [Recovered/Resolved]
  - Arthralgia [Recovered/Resolved]
  - Gait disturbance [Recovered/Resolved]
  - Injection site pain [Recovered/Resolved]
